FAERS Safety Report 4976158-2 (Version None)
Quarter: 2006Q2

REPORT INFORMATION
  Report Type: 
  Country: None (occurrence: None)
  Receive Date: 20060410
  Receipt Date: 20051227
  Transmission Date: 20061013
  Serious: Yes (Death)
  Sender: FDA-Public Use
  Company Number: 2005-140460-NL

PATIENT
  Age: 86 Year
  Sex: Male

DRUGS (7)
  1. DANAPAROID SODIUM [Suspect]
     Indication: DISSEMINATED INTRAVASCULAR COAGULATION
     Route: 042
     Dates: start: 20041216, end: 20041216
  2. DANAPAROID SODIUM [Suspect]
     Indication: DISSEMINATED INTRAVASCULAR COAGULATION
     Route: 042
     Dates: start: 20041217, end: 20041225
  3. IMMUNOGLOBULINS [Concomitant]
  4. GABEXATE MESILATE [Concomitant]
  5. CARBENIN [Concomitant]
  6. ULINASTATIN [Concomitant]
  7. PLASMA PROTEIN FRACTION (HUMAN) [Concomitant]

REACTIONS (2)
  - HAEMOGLOBIN DECREASED [None]
  - INFECTION [None]
